FAERS Safety Report 25181134 (Version 1)
Quarter: 2025Q2

REPORT INFORMATION
  Report Type: Report from Study
  Country: US (occurrence: US)
  Receive Date: 20250410
  Receipt Date: 20250410
  Transmission Date: 20250717
  Serious: Yes (Other)
  Sender: ABBVIE
  Company Number: US-ABBVIE-6208845

PATIENT
  Sex: Male

DRUGS (1)
  1. RISANKIZUMAB [Suspect]
     Active Substance: RISANKIZUMAB
     Indication: Psoriasis
     Route: 058

REACTIONS (10)
  - Limb operation [Unknown]
  - Post procedural complication [Unknown]
  - Arthralgia [Unknown]
  - Paraesthesia [Unknown]
  - Axillary pain [Unknown]
  - Nail discolouration [Unknown]
  - Pain in extremity [Unknown]
  - Musculoskeletal disorder [Unknown]
  - Synovial cyst [Unknown]
  - Muscle spasms [Unknown]
